FAERS Safety Report 7064053-7 (Version None)
Quarter: 2010Q4

REPORT INFORMATION
  Report Type: 
  Country: None (occurrence: None)
  Receive Date: 20101026
  Receipt Date: 20101013
  Transmission Date: 20110411
  Serious: Yes (Hospitalization)
  Sender: FDA-Public Use
  Company Number: US-MYLANLABS-2010S1019125

PATIENT
  Age: 80 Year
  Sex: Female

DRUGS (3)
  1. ASPIRIN [Suspect]
     Route: 065
  2. ALENDRONIC ACID [Suspect]
     Route: 065
  3. FERROUS SULFATE [Suspect]
     Route: 065

REACTIONS (1)
  - HAEMATOMA [None]
